FAERS Safety Report 11628936 (Version 2)
Quarter: 2015Q4

REPORT INFORMATION
  Report Type: Spontaneous
  Country: US (occurrence: US)
  Receive Date: 20151014
  Receipt Date: 20151103
  Transmission Date: 20160304
  Serious: Yes (Life-Threatening, Hospitalization, Other)
  Sender: FDA-Public Use
  Company Number: US-ELI_LILLY_AND_COMPANY-US201510002524

PATIENT
  Age: 74 Year
  Sex: Male
  Weight: 141.4 kg

DRUGS (14)
  1. LOSARTAN. [Concomitant]
     Active Substance: LOSARTAN
  2. HUMALOG [Suspect]
     Active Substance: INSULIN LISPRO
     Dosage: 42 U, QD
     Route: 058
     Dates: start: 20140206
  3. TORSEMIDE. [Concomitant]
     Active Substance: TORSEMIDE
  4. POTASSIUM                          /00031417/ [Concomitant]
  5. SPIRONOLACTONE. [Concomitant]
     Active Substance: SPIRONOLACTONE
  6. COREG [Concomitant]
     Active Substance: CARVEDILOL
  7. LEVEMIR [Concomitant]
     Active Substance: INSULIN DETEMIR
  8. FLUTICASONE [Concomitant]
     Active Substance: FLUTICASONE\FLUTICASONE PROPIONATE
     Route: 045
  9. AMIODARONE [Suspect]
     Active Substance: AMIODARONE
  10. PRAVASTATIN [Concomitant]
     Active Substance: PRAVASTATIN\PRAVASTATIN SODIUM
  11. ALLOPURINOL. [Concomitant]
     Active Substance: ALLOPURINOL
  12. AZELASTINE HCL [Concomitant]
     Active Substance: AZELASTINE HYDROCHLORIDE
     Route: 045
  13. HUMALOG [Suspect]
     Active Substance: INSULIN LISPRO
     Indication: TYPE 2 DIABETES MELLITUS
     Dosage: 38 U, BID
     Route: 058
     Dates: start: 20140206
  14. COUMADIN [Concomitant]
     Active Substance: WARFARIN SODIUM

REACTIONS (7)
  - Cholelithiasis [Unknown]
  - Fatigue [Not Recovered/Not Resolved]
  - Injection site pain [Unknown]
  - Ventricular tachycardia [Unknown]
  - Arrhythmia [Unknown]
  - Hepatic steatosis [Unknown]
  - Sleep disorder [Unknown]

NARRATIVE: CASE EVENT DATE: 201411
